FAERS Safety Report 24342025 (Version 1)
Quarter: 2024Q3

REPORT INFORMATION
  Report Type: Spontaneous
  Country: IT (occurrence: IT)
  Receive Date: 20240920
  Receipt Date: 20240920
  Transmission Date: 20241017
  Serious: No
  Sender: ALKEM
  Company Number: IT-ALKEM LABORATORIES LIMITED-IT-ALKEM-2024-16206

PATIENT
  Age: 63 Year
  Sex: Female

DRUGS (3)
  1. LEVETIRACETAM [Suspect]
     Active Substance: LEVETIRACETAM
     Indication: Focal dyscognitive seizures
     Dosage: UNK
     Route: 065
  2. BRIVARACETAM [Suspect]
     Active Substance: BRIVARACETAM
     Indication: Focal dyscognitive seizures
     Dosage: 150 MILLIGRAM, QD, (MAINTENANCE DOSE)
     Route: 065
  3. CARBAMAZEPINE [Concomitant]
     Active Substance: CARBAMAZEPINE
     Indication: Focal dyscognitive seizures
     Dosage: 1200 MILLIGRAM, QD
     Route: 065

REACTIONS (3)
  - Irritability [Unknown]
  - Headache [Unknown]
  - Drug resistance [Unknown]
